FAERS Safety Report 24607978 (Version 1)
Quarter: 2024Q4

REPORT INFORMATION
  Report Type: Spontaneous
  Country: CN (occurrence: CN)
  Receive Date: 20241112
  Receipt Date: 20241112
  Transmission Date: 20250114
  Serious: Yes (Hospitalization, Other)
  Sender: BAXTER
  Company Number: None

PATIENT
  Age: 62 Year
  Sex: Male
  Weight: 70 kg

DRUGS (12)
  1. CYCLOPHOSPHAMIDE [Suspect]
     Active Substance: CYCLOPHOSPHAMIDE
     Indication: Chemotherapy
     Dosage: 0.4 G, Q12H, D1-3, DILUTED WITH 100 ML OF 0.9% SODIUM CHLORIDE
     Route: 041
     Dates: start: 20241021, end: 20241023
  2. CYCLOPHOSPHAMIDE [Suspect]
     Active Substance: CYCLOPHOSPHAMIDE
     Indication: Neoplasm malignant
  3. CYCLOPHOSPHAMIDE [Suspect]
     Active Substance: CYCLOPHOSPHAMIDE
     Indication: Neoplasm
  4. SODIUM CHLORIDE [Suspect]
     Active Substance: SODIUM CHLORIDE
     Indication: Medication dilution
     Dosage: (0.9%) 100 ML, Q12H, D1-3, USED TO DILUTE WITH 0.4 G CYCLOPHOSPHAMIDE
     Route: 041
     Dates: start: 20241021, end: 20241023
  5. SODIUM CHLORIDE [Suspect]
     Active Substance: SODIUM CHLORIDE
     Dosage: (0.9%) 20 ML, ONE TIME IN ONE DAY, USED TO DILUTE WITH 4 MG XI AI KE (VINDESINE SULFATE)
     Route: 042
     Dates: start: 20241024, end: 20241024
  6. ANHYDROUS DEXTROSE [Suspect]
     Active Substance: ANHYDROUS DEXTROSE
     Indication: Medication dilution
     Dosage: (5%) 250 ML, ONE TIME IN ONE DAY, D4-5, USED TO DILUTE 20 MG OF LIPOSOMAL DOXORUBICIN
     Route: 041
     Dates: start: 20241024, end: 20241025
  7. VINDESINE SULFATE [Suspect]
     Active Substance: VINDESINE SULFATE
     Indication: Chemotherapy
     Dosage: 1 MG, ONE TIME IN ONE DAY, D4, DILUTED WITH 20 ML OF 0.9% SODIUM CHLORIDE
     Route: 042
     Dates: start: 20241024, end: 20241024
  8. VINDESINE SULFATE [Suspect]
     Active Substance: VINDESINE SULFATE
     Indication: Neoplasm malignant
  9. VINDESINE SULFATE [Suspect]
     Active Substance: VINDESINE SULFATE
     Indication: Neoplasm
  10. DOXORUBICIN HYDROCHLORIDE [Suspect]
     Active Substance: DOXORUBICIN HYDROCHLORIDE
     Indication: Chemotherapy
     Dosage: 20 MG, ONE TIME IN ONE DAY, D4-5, DILUTED WITH 250 ML OF 5% GLUCOSE
     Route: 041
     Dates: start: 20241024, end: 20241025
  11. DOXORUBICIN HYDROCHLORIDE [Suspect]
     Active Substance: DOXORUBICIN HYDROCHLORIDE
     Indication: Neoplasm malignant
  12. DOXORUBICIN HYDROCHLORIDE [Suspect]
     Active Substance: DOXORUBICIN HYDROCHLORIDE
     Indication: Neoplasm

REACTIONS (2)
  - Myelosuppression [Unknown]
  - Neutrophil count decreased [Recovering/Resolving]

NARRATIVE: CASE EVENT DATE: 20241030
